FAERS Safety Report 20920940 (Version 1)
Quarter: 2022Q2

REPORT INFORMATION
  Report Type: Spontaneous
  Country: CN (occurrence: CN)
  Receive Date: 20220606
  Receipt Date: 20220606
  Transmission Date: 20220721
  Serious: Yes (Hospitalization)
  Sender: FDA-Public Use
  Company Number: CN-PFIZER INC-202200789314

PATIENT
  Age: 38 Year
  Sex: Female
  Weight: 75 kg

DRUGS (1)
  1. METHOTREXATE [Suspect]
     Active Substance: METHOTREXATE
     Indication: Ectopic pregnancy termination
     Dosage: 90 UG, 1X/DAY (INTO TWO BUTTOCKS)
     Route: 030
     Dates: start: 20220521, end: 20220528

REACTIONS (1)
  - Skin injury [Recovering/Resolving]

NARRATIVE: CASE EVENT DATE: 20220529
